FAERS Safety Report 12607905 (Version 1)
Quarter: 2016Q3

REPORT INFORMATION
  Report Type: Spontaneous
  Country: CA (occurrence: CA)
  Receive Date: 20160729
  Receipt Date: 20160729
  Transmission Date: 20161109
  Serious: Yes (Hospitalization)
  Sender: FDA-Public Use
  Company Number: CA-PFIZER INC-3067204

PATIENT
  Age: 46 Year
  Sex: Female

DRUGS (19)
  1. CEFTRIAXONE SODIUM. [Suspect]
     Active Substance: CEFTRIAXONE SODIUM
     Indication: ABSCESS
     Dosage: 2 G, FREQ: 1 DAY; INTERVAL: 1
     Route: 042
     Dates: start: 20150913, end: 20150916
  2. ACTONEL [Concomitant]
     Active Substance: RISEDRONATE SODIUM
     Indication: PRODUCT USED FOR UNKNOWN INDICATION
     Dosage: UNK
  3. PLAQUENIL /00072602/ [Concomitant]
     Active Substance: HYDROXYCHLOROQUINE DIPHOSPHATE
     Indication: PRODUCT USED FOR UNKNOWN INDICATION
     Dosage: UNK
  4. IMOVAN [Concomitant]
     Indication: PRODUCT USED FOR UNKNOWN INDICATION
     Dosage: UNK
  5. PANTOLOC /01263204/ [Suspect]
     Active Substance: PANTOPRAZOLE SODIUM
     Indication: PRODUCT USED FOR UNKNOWN INDICATION
     Dosage: 40 MG, FREQ: 1 DAY; INTERVAL: 1
     Route: 065
     Dates: start: 20150101, end: 20150101
  6. DILAUDID [Concomitant]
     Active Substance: HYDROMORPHONE HYDROCHLORIDE
     Indication: PRODUCT USED FOR UNKNOWN INDICATION
     Dosage: UNK
  7. METHOTREXATE. [Concomitant]
     Active Substance: METHOTREXATE
     Indication: PRODUCT USED FOR UNKNOWN INDICATION
     Dosage: UNK
     Dates: start: 20150908
  8. APO-CEPHALEX [Concomitant]
     Active Substance: CEPHALEXIN
     Indication: ABSCESS
     Dosage: UNK
     Route: 048
  9. CARDIZEM [Concomitant]
     Active Substance: DILTIAZEM HYDROCHLORIDE
     Indication: PRODUCT USED FOR UNKNOWN INDICATION
     Dosage: UNK
  10. VANCOMYCIN HCL [Suspect]
     Active Substance: VANCOMYCIN HYDROCHLORIDE
     Indication: ABSCESS
     Dosage: UNK
     Route: 042
     Dates: start: 20150914, end: 20150916
  11. ENTYVIO [Suspect]
     Active Substance: VEDOLIZUMAB
     Indication: COLITIS ULCERATIVE
     Dosage: 300 MG, UNK
     Route: 042
     Dates: start: 20150821
  12. FRAGMIN [Suspect]
     Active Substance: DALTEPARIN SODIUM
     Indication: PRODUCT USED FOR UNKNOWN INDICATION
     Dosage: 15000 IU, DAILY
     Route: 058
  13. VENOFER [Suspect]
     Active Substance: IRON SUCROSE
     Indication: PRODUCT USED FOR UNKNOWN INDICATION
     Dosage: FREQ: 1 WEEK; INTERVAL: 2
     Route: 042
     Dates: start: 20140901
  14. PREDNISONE. [Concomitant]
     Active Substance: PREDNISONE
     Indication: PRODUCT USED FOR UNKNOWN INDICATION
     Dosage: UNK
  15. ANCEF [Suspect]
     Active Substance: CEFAZOLIN SODIUM
     Indication: ABSCESS
     Dosage: 2 G, FREQ: 1 DAY; INTERVAL: 1
     Route: 042
     Dates: start: 20150916
  16. STEMETIL /00013301/ [Concomitant]
     Active Substance: PROCHLORPERAZINE
     Indication: PRODUCT USED FOR UNKNOWN INDICATION
     Dosage: UNK
  17. VITAMIND /00107901/ [Concomitant]
     Indication: PRODUCT USED FOR UNKNOWN INDICATION
     Dosage: UNK
  18. KETOLEX [Suspect]
     Active Substance: KETOROLAC TROMETHAMINE
     Indication: ABSCESS
     Dosage: 500 MG, FREQ: 4 DAY: INTERVAL: 1
     Route: 048
     Dates: start: 20150918, end: 20151002
  19. SALOFALK /00000301/ [Concomitant]
     Active Substance: MESALAMINE
     Indication: PRODUCT USED FOR UNKNOWN INDICATION
     Dosage: UNK
     Dates: start: 20150101, end: 20150301

REACTIONS (11)
  - Infusion site oedema [Unknown]
  - Tooth abscess [Recovered/Resolved]
  - Haematoma [Unknown]
  - Abscess limb [Recovered/Resolved]
  - Infusion site pain [Unknown]
  - Infusion site erythema [Unknown]
  - Secretion discharge [Unknown]
  - Erythema nodosum [Unknown]
  - Diarrhoea haemorrhagic [Unknown]
  - Colitis ulcerative [Recovered/Resolved]
  - Infusion site warmth [Unknown]

NARRATIVE: CASE EVENT DATE: 20151201
